FAERS Safety Report 5971331-9 (Version None)
Quarter: 2008Q4

REPORT INFORMATION
  Report Type: 
  Country: None (occurrence: None)
  Receive Date: 20081128
  Receipt Date: 20081121
  Transmission Date: 20090506
  Serious: Yes (Hospitalization)
  Sender: FDA-Public Use
  Company Number: FR-PFIZER INC-2008099595

PATIENT
  Sex: Female
  Weight: 59 kg

DRUGS (1)
  1. SU-011,248 [Suspect]
     Indication: BREAST CANCER
     Route: 048
     Dates: start: 20081107, end: 20081118

REACTIONS (1)
  - GENERAL PHYSICAL HEALTH DETERIORATION [None]
